FAERS Safety Report 20504680 (Version 2)
Quarter: 2022Q1

REPORT INFORMATION
  Report Type: Spontaneous
  Country: BR (occurrence: BR)
  Receive Date: 20220223
  Receipt Date: 20220328
  Transmission Date: 20220424
  Serious: Yes (Other)
  Sender: FDA-Public Use
  Company Number: BR-NOVARTISPH-NVSC2022BR040150

PATIENT
  Sex: Male

DRUGS (1)
  1. DIOVAN HCT [Suspect]
     Active Substance: HYDROCHLOROTHIAZIDE\VALSARTAN
     Indication: Product used for unknown indication
     Dosage: 160/12.5 MG (STARTED APPROXIMATELY 6 YEARS AND STOPPED APPROXIMATELY 6 YEARS AGO)
     Route: 065

REACTIONS (3)
  - Hypertension [Recovered/Resolved]
  - Hypothyroidism [Unknown]
  - Insomnia [Unknown]
